FAERS Safety Report 4285013-5 (Version None)
Quarter: 2004Q1

REPORT INFORMATION
  Report Type: 
  Country: None (occurrence: None)
  Receive Date: 20040204
  Receipt Date: 20040128
  Transmission Date: 20041129
  Serious: Yes (Disabling)
  Sender: FDA-Public Use
  Company Number: WAES 0401GBR00254

PATIENT
  Age: 3 Year
  Sex: Female
  Weight: 14 kg

DRUGS (3)
  1. ALBUTEROL SULFATE [Concomitant]
     Route: 055
     Dates: start: 20020918
  2. BECLOMETHASONE DIPROPIONATE [Concomitant]
     Indication: ASTHMA
     Route: 055
     Dates: start: 20020918
  3. SINGULAIR [Suspect]
     Indication: ASTHMA
     Route: 048
     Dates: start: 20031104, end: 20031111

REACTIONS (10)
  - COUGH [None]
  - CRYING [None]
  - EAR PAIN [None]
  - HALLUCINATION [None]
  - HEADACHE [None]
  - INSOMNIA [None]
  - NIGHTMARE [None]
  - POLYDIPSIA [None]
  - PSYCHOMOTOR HYPERACTIVITY [None]
  - VOMITING [None]
